FAERS Safety Report 20534532 (Version 1)
Quarter: 2022Q1

REPORT INFORMATION
  Report Type: Spontaneous
  Country: FR (occurrence: FR)
  Receive Date: 20220302
  Receipt Date: 20220302
  Transmission Date: 20220424
  Serious: Yes (Hospitalization, Disabling, Congenital Anomaly, Other)
  Sender: FDA-Public Use
  Company Number: FR-ABBVIE-22K-056-4292302-00

PATIENT
  Sex: Male
  Weight: 3.37 kg

DRUGS (2)
  1. VALPROATE SODIUM [Suspect]
     Active Substance: VALPROATE SODIUM
     Indication: Maternal exposure timing unspecified
     Route: 064
  2. LEUCOVORIN CALCIUM [Concomitant]
     Active Substance: LEUCOVORIN CALCIUM
     Indication: Product used for unknown indication

REACTIONS (62)
  - Gastrooesophageal reflux disease [Unknown]
  - Regurgitation [Unknown]
  - Gastroenteritis viral [Unknown]
  - Dehydration [Unknown]
  - Dry mouth [Unknown]
  - Glossitis [Unknown]
  - Gastrointestinal disorder congenital [Unknown]
  - Umbilical hernia [Unknown]
  - Inguinal hernia [Unknown]
  - Foetal anticonvulsant syndrome [Unknown]
  - Ear infection [Unknown]
  - Nasopharyngitis [Unknown]
  - Ear, nose and throat disorder [Unknown]
  - Pain in extremity [Unknown]
  - Inadequate diet [Unknown]
  - Foetal exposure during pregnancy [Unknown]
  - Vomiting [Unknown]
  - Diarrhoea [Unknown]
  - Weight decreased [Unknown]
  - Executive dysfunction [Unknown]
  - Intellectual disability [Unknown]
  - Hypospadias [Unknown]
  - Psychomotor skills impaired [Unknown]
  - Congenital oculomotor apraxia [Unknown]
  - Ear, nose and throat disorder [Unknown]
  - Ear, nose and throat disorder [Unknown]
  - Anxiety disorder [Unknown]
  - Enuresis [Unknown]
  - Attention deficit hyperactivity disorder [Unknown]
  - Dyspraxia [Unknown]
  - Binocular eye movement disorder [Unknown]
  - Memory impairment [Unknown]
  - Dysgraphia [Unknown]
  - Visual impairment [Unknown]
  - Attention deficit hyperactivity disorder [Unknown]
  - Psychomotor retardation [Unknown]
  - Mental disorder [Unknown]
  - Executive dysfunction [Unknown]
  - Cognitive disorder [Unknown]
  - Dysmorphism [Unknown]
  - Hypotonia neonatal [Unknown]
  - Gait disturbance [Unknown]
  - Talipes [Unknown]
  - Testicular pain [Unknown]
  - Intellectual disability [Unknown]
  - Limb asymmetry [Unknown]
  - Disturbance in attention [Unknown]
  - Motor developmental delay [Unknown]
  - Developmental coordination disorder [Unknown]
  - Gross motor delay [Unknown]
  - Autism spectrum disorder [Unknown]
  - Hypospadias [Unknown]
  - Autism spectrum disorder [Unknown]
  - Impatience [Unknown]
  - Anxiety [Unknown]
  - Behaviour disorder [Unknown]
  - Congenital nipple anomaly [Unknown]
  - Pectus excavatum [Unknown]
  - Psychomotor skills impaired [Unknown]
  - Congenital oculomotor apraxia [Unknown]
  - Apraxia [Unknown]
  - Memory impairment [Unknown]
